FAERS Safety Report 5757445-7 (Version None)
Quarter: 2008Q2

REPORT INFORMATION
  Report Type: 
  Country: None (occurrence: None)
  Receive Date: 20080603
  Receipt Date: 20080108
  Transmission Date: 20081010
  Serious: No
  Sender: FDA-Public Use
  Company Number: US-BOEHRINGER INGELHEIM GMBH, GERMANY-2007-BP-21971BP

PATIENT
  Sex: Male

DRUGS (29)
  1. MIRAPEX [Suspect]
     Indication: PARKINSON'S DISEASE
     Route: 048
     Dates: start: 19990205, end: 19990623
  2. MIRAPEX [Suspect]
     Route: 048
     Dates: start: 20000419, end: 20060501
  3. COMTAN [Concomitant]
     Indication: PARKINSON'S DISEASE
  4. CARBIDOPA + LEVODOPA [Concomitant]
     Indication: PARKINSON'S DISEASE
  5. CLONAZEPAM [Concomitant]
  6. IBUROFEN [Concomitant]
  7. LYRICA [Concomitant]
     Indication: BACK PAIN
     Dates: start: 20051208
  8. LYRICA [Concomitant]
     Indication: PAIN IN EXTREMITY
  9. VIAGRA [Concomitant]
  10. COGENTIN [Concomitant]
  11. QUININE SULFATE [Concomitant]
  12. FLEXERIL [Concomitant]
  13. MULTI-VITAMIN [Concomitant]
  14. NEURONTIN [Concomitant]
  15. PROZAC [Concomitant]
  16. FLOMAX [Concomitant]
  17. CALCIUM [Concomitant]
  18. REQUIP [Concomitant]
  19. VIOXX [Concomitant]
  20. CELESTONE TAB [Concomitant]
  21. HYTRIN [Concomitant]
  22. ALLEGRA [Concomitant]
  23. VALIUM [Concomitant]
  24. LEVITRA [Concomitant]
     Dates: start: 20050501
  25. OXYBUTYRIN [Concomitant]
  26. CIALIS [Concomitant]
  27. PERCOCET [Concomitant]
  28. REQUIP [Concomitant]
     Dates: start: 19990720
  29. KEFLEX [Concomitant]

REACTIONS (5)
  - DEPRESSION [None]
  - EMOTIONAL DISTRESS [None]
  - HYPERPHAGIA [None]
  - OBSESSIVE-COMPULSIVE DISORDER [None]
  - PATHOLOGICAL GAMBLING [None]
